FAERS Safety Report 8029174-0 (Version None)
Quarter: 2012Q1

REPORT INFORMATION
  Report Type: 
  Country: None (occurrence: None)
  Receive Date: 20120106
  Receipt Date: 20120103
  Transmission Date: 20120608
  Serious: Yes (Hospitalization)
  Sender: FDA-Public Use
  Company Number: PHEH2011US010713

PATIENT
  Sex: Male

DRUGS (11)
  1. GLEEVEC [Suspect]
     Dosage: 400 MG, UNK
  2. GLEEVEC [Suspect]
     Dosage: 200 MG, QD
     Route: 048
  3. CIPROFLOXACIN [Concomitant]
     Dosage: UNK UKN, UNK
  4. LOSARTAN POTASSIUM [Concomitant]
     Dosage: UNK UKN, UNK
  5. ROSUVASTATIN [Concomitant]
     Dosage: UNK UKN, UNK
  6. FLUCONAZOLE [Concomitant]
     Dosage: UNK UKN, UNK
  7. GLEEVEC [Suspect]
     Indication: CHRONIC MYELOID LEUKAEMIA
     Dosage: 600 MG, DAILY
     Route: 048
     Dates: start: 20110112
  8. ACYCLOVIR [Concomitant]
     Dosage: UNK UKN, UNK
  9. METFORMIN HCL [Concomitant]
     Dosage: UNK UKN, UNK
  10. GLIPIZIDE [Concomitant]
     Dosage: UNK UKN, UNK
  11. HYDROCHLOROTHIAZIDE [Concomitant]
     Dosage: UNK UKN, UNK

REACTIONS (6)
  - PYREXIA [None]
  - RASH GENERALISED [None]
  - PANCYTOPENIA [None]
  - GENERALISED OEDEMA [None]
  - RENAL FAILURE [None]
  - INFECTION [None]
